FAERS Safety Report 11467269 (Version 2)
Quarter: 2015Q3

REPORT INFORMATION
  Report Type: Spontaneous
  Country: CA (occurrence: US)
  Receive Date: 20150908
  Receipt Date: 20150924
  Transmission Date: 20151125
  Serious: Yes (Hospitalization, Other)
  Sender: FDA-Public Use
  Company Number: CA-009507513-1509USA002080

PATIENT
  Age: 29 Year
  Sex: Female

DRUGS (5)
  1. GLIMEPIRIDE. [Suspect]
     Active Substance: GLIMEPIRIDE
     Dosage: 2 MG, ONE TABLET EVERY 12 HOURS
     Route: 048
  2. PRINIVIL [Suspect]
     Active Substance: LISINOPRIL
     Dosage: 2.5 MG, 1 TABLET DAILY
     Route: 048
  3. GEMFIBROZIL. [Suspect]
     Active Substance: GEMFIBROZIL
     Dosage: 600 MG, 1 TABLET DAILY
     Route: 048
  4. METFORMIN [Suspect]
     Active Substance: METFORMIN HYDROCHLORIDE
     Dosage: 1000 MG, 1 TABLET DAILY
     Route: 048
  5. HUMULIN NOS [Suspect]
     Active Substance: INSULIN HUMAN
     Dosage: MORNING 45 AND EVENING 32 (UNIT UNSPECIFIED)

REACTIONS (3)
  - Scoliosis [Unknown]
  - Pancreatitis [Unknown]
  - Diabetes mellitus [Unknown]
